FAERS Safety Report 7129600-5 (Version None)
Quarter: 2010Q4

REPORT INFORMATION
  Report Type: 
  Country: None (occurrence: None)
  Receive Date: 20101130
  Receipt Date: 20101117
  Transmission Date: 20110411
  Serious: Yes (Hospitalization)
  Sender: FDA-Public Use
  Company Number: PHHO2010FR11797

PATIENT
  Sex: Male

DRUGS (13)
  1. STI571/CGP57148B T35717+TAB [Suspect]
     Indication: ACUTE LYMPHOCYTIC LEUKAEMIA
     Dosage: UNK
     Route: 048
     Dates: start: 20100719, end: 20100803
  2. HYPER-CVAD [Suspect]
     Indication: ACUTE LYMPHOCYTIC LEUKAEMIA
     Dosage: UNK
     Dates: start: 20100719, end: 20100803
  3. AXEPIM [Concomitant]
  4. AMBISOME [Concomitant]
  5. TOPALGIC ^HOUDE^ [Concomitant]
  6. STILNOX                                 /FRA/ [Concomitant]
  7. MYOLASTAM [Concomitant]
  8. NEXIUM [Concomitant]
  9. SONDALIS HP [Concomitant]
  10. BACTRIM [Concomitant]
  11. LEDERFOLIN [Concomitant]
  12. VALACYCLOVIR HYDROCHLORIDE [Concomitant]
  13. NEXIUM [Concomitant]

REACTIONS (9)
  - ASPERGILLOSIS [None]
  - COUGH [None]
  - CYTOLYTIC HEPATITIS [None]
  - HEPATITIS E [None]
  - HYPOXIA [None]
  - JAUNDICE [None]
  - LUNG DISORDER [None]
  - PULMONARY MASS [None]
  - PYREXIA [None]
